FAERS Safety Report 15392726 (Version 3)
Quarter: 2018Q4

REPORT INFORMATION
  Report Type: Spontaneous
  Country: US (occurrence: US)
  Receive Date: 20180917
  Receipt Date: 20181018
  Transmission Date: 20190204
  Serious: Yes (Other)
  Sender: FDA-Public Use
  Company Number: US-PFIZER INC-2018370618

PATIENT
  Age: 75 Year
  Sex: Female
  Weight: 54 kg

DRUGS (5)
  1. PREDNISONE. [Concomitant]
     Active Substance: PREDNISONE
     Indication: INFLAMMATION
     Dosage: 1 DF, DAILY (IN THE EVENING)
     Route: 048
  2. GABAPENTIN. [Concomitant]
     Active Substance: GABAPENTIN
     Indication: FIBROMYALGIA
     Dosage: 4 DF, DAILY (1 TABLET IN THE MORNING, 1 TABLET IN THE AFTERNOON, 2 TABLETS AT BEDTIME)
     Route: 048
  3. XELJANZ XR [Suspect]
     Active Substance: TOFACITINIB CITRATE
     Indication: RHEUMATOID ARTHRITIS
     Dosage: 11 MG, DAILY
     Route: 048
  4. GABAPENTIN. [Concomitant]
     Active Substance: GABAPENTIN
     Indication: PAIN
  5. MELOXICAM. [Concomitant]
     Active Substance: MELOXICAM
     Indication: INFLAMMATION
     Dosage: 1 DF, DAILY (IN THE MORNING)
     Route: 048

REACTIONS (4)
  - Sensitivity to weather change [Unknown]
  - Condition aggravated [Unknown]
  - Lower limb fracture [Not Recovered/Not Resolved]
  - Tibia fracture [Unknown]

NARRATIVE: CASE EVENT DATE: 201805
